FAERS Safety Report 19944285 (Version 2)
Quarter: 2021Q4

REPORT INFORMATION
  Report Type: Report from Study
  Country: CO (occurrence: CO)
  Receive Date: 20211012
  Receipt Date: 20211020
  Transmission Date: 20220304
  Serious: Yes (Hospitalization, Other)
  Sender: FDA-Public Use
  Company Number: CO-SA-SAC20211005001548

PATIENT

DRUGS (10)
  1. PRALUENT [Suspect]
     Active Substance: ALIROCUMAB
     Indication: Myocardial ischaemia
     Dosage: 150 MG, Q15D
     Route: 058
     Dates: start: 20210708
  2. PRALUENT [Suspect]
     Active Substance: ALIROCUMAB
     Indication: Hyperlipidaemia
  3. METOPROLOL SUCCINATE [Concomitant]
     Active Substance: METOPROLOL SUCCINATE
     Dosage: UNK
     Route: 048
  4. VALSARTAN [Concomitant]
     Active Substance: VALSARTAN
     Dosage: UNK
     Route: 048
  5. EZETIMIBE\ROSUVASTATIN [Concomitant]
     Active Substance: EZETIMIBE\ROSUVASTATIN
     Dosage: UNK
     Route: 048
  6. FENOFIBRATE;ROSUVASTATIN [Concomitant]
     Dosage: UNK
     Route: 048
     Dates: end: 20210930
  7. VASTAREL [Concomitant]
     Active Substance: TRIMETAZIDINE DIHYDROCHLORIDE
     Dosage: UNK
     Route: 048
  8. ISOSORBIDE DINITRATE [Concomitant]
     Active Substance: ISOSORBIDE DINITRATE
     Dosage: UNK
     Route: 048
  9. ASPIRIN [Concomitant]
     Active Substance: ASPIRIN
     Dosage: UNK
     Route: 048
  10. PRASUGREL [Concomitant]
     Active Substance: PRASUGREL
     Dosage: UNK
     Route: 048

REACTIONS (3)
  - Myocardial infarction [Recovering/Resolving]
  - Malaise [Recovered/Resolved]
  - Chest pain [Recovering/Resolving]

NARRATIVE: CASE EVENT DATE: 20210926
